FAERS Safety Report 6617504-3 (Version None)
Quarter: 2010Q1

REPORT INFORMATION
  Report Type: 
  Country: None (occurrence: None)
  Receive Date: 20100302
  Receipt Date: 20100216
  Transmission Date: 20100710
  Serious: Yes (Hospitalization)
  Sender: FDA-Public Use
  Company Number: 20100071

PATIENT
  Age: 76 Year
  Sex: Male

DRUGS (1)
  1. EPINEPHRINE INJECTIONS, USP (1071-25) 1 MG/ML [Suspect]
     Indication: ANGIOEDEMA
     Dosage: 0.2 CC INTRAVENOUS
     Route: 042

REACTIONS (4)
  - BLOOD PRESSURE INCREASED [None]
  - ELECTROCARDIOGRAM ST-T CHANGE [None]
  - INCORRECT ROUTE OF DRUG ADMINISTRATION [None]
  - TACHYCARDIA [None]
